FAERS Safety Report 6825863-1 (Version None)
Quarter: 2010Q3

REPORT INFORMATION
  Report Type: 
  Country: None (occurrence: None)
  Receive Date: 20100709
  Receipt Date: 20100630
  Transmission Date: 20110219
  Serious: Yes (Other)
  Sender: FDA-Public Use
  Company Number: US-ELI_LILLY_AND_COMPANY-US201006002548

PATIENT
  Age: 48 Year
  Sex: Female
  Weight: 84.807 kg

DRUGS (5)
  1. BYETTA [Suspect]
     Indication: TYPE 2 DIABETES MELLITUS
     Dosage: 5 UG, UNKNOWN
     Route: 058
     Dates: start: 20100525, end: 20100603
  2. METFORMIN HCL [Concomitant]
     Indication: TYPE 2 DIABETES MELLITUS
     Dates: end: 20100601
  3. ANTIHYPERTENSIVES [Concomitant]
     Indication: BLOOD PRESSURE INCREASED
     Dates: end: 20100601
  4. HYDROCHLOROTHIAZIDE [Concomitant]
  5. ACE INHIBITORS [Concomitant]

REACTIONS (2)
  - PANCREATITIS [None]
  - PANCREATITIS ACUTE [None]
